FAERS Safety Report 8057787-9 (Version None)
Quarter: 2012Q1

REPORT INFORMATION
  Report Type: 
  Country: None (occurrence: None)
  Receive Date: 20120120
  Receipt Date: 20120113
  Transmission Date: 20120608
  Serious: No
  Sender: FDA-Public Use
  Company Number: US-BIOGENIDEC-2012BI001672

PATIENT
  Sex: Female

DRUGS (5)
  1. AVONEX [Concomitant]
     Indication: MULTIPLE SCLEROSIS
     Route: 030
  2. TYSABRI [Suspect]
     Indication: MULTIPLE SCLEROSIS
     Route: 042
     Dates: start: 20050124
  3. TYSABRI [Suspect]
     Route: 042
     Dates: start: 20111230
  4. GILENYA [Concomitant]
     Indication: PRODUCT USED FOR UNKNOWN INDICATION
  5. TYSABRI [Suspect]
     Route: 042
     Dates: start: 20061013, end: 20110216

REACTIONS (5)
  - FATIGUE [None]
  - ADVERSE DRUG REACTION [None]
  - DRUG SPECIFIC ANTIBODY PRESENT [None]
  - THYROID FUNCTION TEST ABNORMAL [None]
  - UPPER LIMB FRACTURE [None]
